FAERS Safety Report 12459397 (Version 1)
Quarter: 2016Q2

REPORT INFORMATION
  Report Type: Spontaneous
  Country: US (occurrence: None)
  Receive Date: 20160610
  Receipt Date: 20160610
  Transmission Date: 20160815
  Serious: Yes (Disabling)
  Sender: FDA-Public Use
  Company Number: None

PATIENT
  Age: 19 Year
  Sex: Male
  Weight: 65.77 kg

DRUGS (17)
  1. TYGACIL [Concomitant]
     Active Substance: TIGECYCLINE
  2. VITAMIN E [Concomitant]
     Active Substance: .ALPHA.-TOCOPHEROL
  3. PULMOZYME [Concomitant]
     Active Substance: DORNASE ALFA
  4. ONDANSETRON [Concomitant]
     Active Substance: ONDANSETRON
  5. AMIKACIN [Suspect]
     Active Substance: AMIKACIN
     Indication: PSEUDOMONAS INFECTION
     Route: 040
     Dates: start: 20150902, end: 20160302
  6. CEFOXITIN [Concomitant]
     Active Substance: CEFOXITIN SODIUM
  7. LANTUS [Concomitant]
     Active Substance: INSULIN GLARGINE
  8. ALBUTEROL. [Concomitant]
     Active Substance: ALBUTEROL
  9. AMIKACIN [Suspect]
     Active Substance: AMIKACIN
     Indication: PSEUDOMONAS INFECTION
     Route: 055
     Dates: start: 20160302, end: 20160517
  10. HUMALOG [Concomitant]
     Active Substance: INSULIN LISPRO
  11. CREON [Concomitant]
     Active Substance: PANCRELIPASE AMYLASE\PANCRELIPASE LIPASE\PANCRELIPASE PROTEASE
  12. ACETAMINOPHEN. [Concomitant]
     Active Substance: ACETAMINOPHEN
  13. CHOLECALCIFEROL [Concomitant]
     Active Substance: CHOLECALCIFEROL
  14. IBUPROFEN. [Concomitant]
     Active Substance: IBUPROFEN
  15. MIRALAX [Concomitant]
     Active Substance: POLYETHYLENE GLYCOL 3350
  16. AQUADEKS [Concomitant]
     Active Substance: MINERALS\VITAMINS
  17. URSODIOL. [Concomitant]
     Active Substance: URSODIOL

REACTIONS (2)
  - Deafness [None]
  - Ototoxicity [None]

NARRATIVE: CASE EVENT DATE: 20160517
